FAERS Safety Report 18376562 (Version 1)
Quarter: 2020Q4

REPORT INFORMATION
  Report Type: Spontaneous
  Country: US (occurrence: US)
  Receive Date: 20201012
  Receipt Date: 20201012
  Transmission Date: 20210114
  Serious: Yes (Hospitalization)
  Sender: FDA-Public Use
  Company Number: None

PATIENT
  Age: 63 Year
  Sex: Female

DRUGS (1)
  1. OCTREOTIDE. [Suspect]
     Active Substance: OCTREOTIDE
     Indication: COLITIS MICROSCOPIC
     Dosage: ?          OTHER FREQUENCY:Q8HRS;?
     Route: 058
     Dates: start: 20200808

REACTIONS (1)
  - Hospitalisation [None]
